FAERS Safety Report 4283326-4 (Version None)
Quarter: 2004Q1

REPORT INFORMATION
  Report Type: 
  Country: None (occurrence: None)
  Receive Date: 20040114
  Receipt Date: 20031016
  Transmission Date: 20041129
  Serious: Yes (Other)
  Sender: FDA-Public Use
  Company Number: BIVUS030097

PATIENT

DRUGS (2)
  1. ANGIOMAX [Suspect]
     Indication: ANTICOAGULANT THERAPY
     Dates: start: 20031009, end: 20031009
  2. ANGIOMAX [Suspect]
     Indication: STENT PLACEMENT
     Dates: start: 20031009, end: 20031009

REACTIONS (1)
  - CORONARY ARTERY THROMBOSIS [None]
